FAERS Safety Report 8106378 (Version 3)
Quarter: 2012Q4

REPORT INFORMATION
  Report Type: 
  Country: US (occurrence: US)
  Receive Date: 20110825
  Receipt Date: 20120903
  Transmission Date: 20130627
  Serious: Yes (Hospitalization)
  Sender: FDA-Public Use
  Company Number: US-BAYER-2011-075372

PATIENT
  Age: 21 Year
  Sex: Female

DRUGS (1)
  1. YASMIN [Suspect]
     Indication: MENSTRUATION IRREGULAR

REACTIONS (3)
  - Gallbladder injury [Unknown]
  - Injury [Unknown]
  - Pain [Unknown]
